FAERS Safety Report 8458445-9 (Version None)
Quarter: 2012Q2

REPORT INFORMATION
  Report Type: 
  Country: None (occurrence: None)
  Receive Date: 20120622
  Receipt Date: 20120613
  Transmission Date: 20120825
  Serious: Yes (Hospitalization)
  Sender: FDA-Public Use
  Company Number: US-BRISTOL-MYERS SQUIBB COMPANY-16684359

PATIENT
  Age: 57 Year
  Sex: Female
  Weight: 127 kg

DRUGS (2)
  1. COUMADIN [Suspect]
     Indication: THROMBOSIS
     Dates: start: 20110905, end: 20110101
  2. LYRICA [Suspect]
     Indication: FIBROMYALGIA

REACTIONS (3)
  - PNEUMONIA [None]
  - HAEMATEMESIS [None]
  - BACTERAEMIA [None]
